FAERS Safety Report 5737142-4 (Version None)
Quarter: 2008Q2

REPORT INFORMATION
  Report Type: 
  Country: None (occurrence: None)
  Receive Date: 20080513
  Receipt Date: 20080513
  Transmission Date: 20081010
  Serious: Yes (Other)
  Sender: FDA-Public Use
  Company Number: None

PATIENT
  Age: 33 Year
  Sex: Female
  Weight: 158.759 kg

DRUGS (1)
  1. LISTERINE PRO HEALTH MOUTHWASH PROCTER + GAMBLE [Suspect]
     Indication: DENTAL DISORDER PROPHYLAXIS
     Dosage: 1 CAPFUL TWICE DAILY PO
     Route: 048
     Dates: start: 20070201, end: 20070715

REACTIONS (6)
  - DYSGEUSIA [None]
  - HYPOAESTHESIA ORAL [None]
  - ORAL DISCOMFORT [None]
  - PHARMACEUTICAL PRODUCT COMPLAINT [None]
  - RETCHING [None]
  - TOOTH DISCOLOURATION [None]
